FAERS Safety Report 12226987 (Version 1)
Quarter: 2016Q1

REPORT INFORMATION
  Report Type: Spontaneous
  Country: US (occurrence: US)
  Receive Date: 20160331
  Receipt Date: 20160331
  Transmission Date: 20160526
  Serious: Yes (Hospitalization, Other)
  Sender: FDA-Public Use
  Company Number: US-GILEAD-2016-0205944

PATIENT
  Sex: Male

DRUGS (3)
  1. AMIODARONE [Concomitant]
     Active Substance: AMIODARONE
  2. RANEXA [Suspect]
     Active Substance: RANOLAZINE
     Indication: ATRIAL FIBRILLATION
     Dosage: 500 MG, BID
     Route: 065
  3. RANEXA [Suspect]
     Active Substance: RANOLAZINE
     Dosage: 1000 MG, BID
     Route: 065

REACTIONS (3)
  - Off label use [Unknown]
  - Gastrointestinal tube insertion [Unknown]
  - Atrial fibrillation [Unknown]
